FAERS Safety Report 12661515 (Version 2)
Quarter: 2016Q4

REPORT INFORMATION
  Report Type: Spontaneous
  Country: US (occurrence: US)
  Receive Date: 20160817
  Receipt Date: 20161025
  Transmission Date: 20170207
  Serious: Yes (Hospitalization, Other)
  Sender: FDA-Public Use
  Company Number: US-PFIZER INC-2016390330

PATIENT
  Age: 45 Year
  Sex: Female
  Weight: 86.17 kg

DRUGS (18)
  1. REVATIO [Suspect]
     Active Substance: SILDENAFIL CITRATE
     Indication: PULMONARY HYPERTENSION
     Dosage: 20 MG, 3X/DAY
     Dates: start: 200510
  2. HUMALOG [Concomitant]
     Active Substance: INSULIN LISPRO
     Dosage: 31 IU, DAILY ( (8 UNITS AT BREAKFAST, 11 UNITS AT LUNCH, 12 UNITS AT DINNER)
     Dates: start: 200511
  3. FLEXERIL [Concomitant]
     Active Substance: CYCLOBENZAPRINE HYDROCHLORIDE
     Indication: MUSCLE RELAXANT THERAPY
  4. LANTUS [Concomitant]
     Active Substance: INSULIN GLARGINE
     Dosage: UNK
     Dates: start: 200511
  5. FIORICET [Concomitant]
     Active Substance: ACETAMINOPHEN\BUTALBITAL\CAFFEINE
     Dosage: UNK  (BUTALBITAL-50MG, CAFFEINE-40MG, PARACETAMOL-325MG)
     Dates: start: 1995
  6. REVATIO [Suspect]
     Active Substance: SILDENAFIL CITRATE
     Dosage: 20 MG, 3X/DAY
     Route: 048
     Dates: start: 200511
  7. PREDNISONE. [Concomitant]
     Active Substance: PREDNISONE
     Indication: ATRIAL FIBRILLATION
     Dosage: 10 MG, UNK
  8. LANTUS [Concomitant]
     Active Substance: INSULIN GLARGINE
     Indication: DIABETES MELLITUS
     Dosage: 8 IU, 1X/DAY (AT BEDTIME)
     Dates: start: 200510
  9. PREDNISONE. [Concomitant]
     Active Substance: PREDNISONE
     Indication: THROMBOSIS
     Dosage: 40 MG, UNK (FOR 3 YEARS)
  10. FLEXERIL [Concomitant]
     Active Substance: CYCLOBENZAPRINE HYDROCHLORIDE
     Indication: MIGRAINE
     Dosage: UNK
     Dates: start: 2010
  11. LASIX [Concomitant]
     Active Substance: FUROSEMIDE
     Dosage: 80 MG, 2X/DAY (40 MG TAKE 2 TWO TIME A DAY)
  12. PREDNISONE. [Concomitant]
     Active Substance: PREDNISONE
     Indication: ANTIPHOSPHOLIPID SYNDROME
     Dosage: 5 MG, UNK
  13. PREDNISONE. [Concomitant]
     Active Substance: PREDNISONE
     Indication: SYSTEMIC LUPUS ERYTHEMATOSUS
     Dosage: UNK UNK, 1X/DAY (40 OR 60 MG)
     Route: 048
     Dates: start: 2000
  14. NEURONTIN [Concomitant]
     Active Substance: GABAPENTIN
     Indication: MIGRAINE
     Dosage: UNK
     Dates: start: 2001
  15. PREDNISONE. [Concomitant]
     Active Substance: PREDNISONE
     Indication: BODY TEMPERATURE
     Dosage: 5 MG, 1X/DAY
     Dates: start: 200510
  16. CLONIDINE. [Concomitant]
     Active Substance: CLONIDINE
     Indication: MIGRAINE
     Dosage: UNK
     Dates: start: 2010
  17. NEURONTIN [Concomitant]
     Active Substance: GABAPENTIN
     Indication: TREMOR
  18. NORTRIPTYLINE [Concomitant]
     Active Substance: NORTRIPTYLINE
     Indication: MIGRAINE
     Dosage: UNK
     Dates: start: 2010

REACTIONS (5)
  - Condition aggravated [Not Recovered/Not Resolved]
  - Cardiac failure [Not Recovered/Not Resolved]
  - Oxygen saturation abnormal [Not Recovered/Not Resolved]
  - Diaphragmatic disorder [Not Recovered/Not Resolved]
  - Dyspnoea [Not Recovered/Not Resolved]

NARRATIVE: CASE EVENT DATE: 200511
